FAERS Safety Report 5829663-0 (Version None)
Quarter: 2008Q3

REPORT INFORMATION
  Report Type: 
  Country: None (occurrence: None)
  Receive Date: 20080729
  Receipt Date: 20080718
  Transmission Date: 20090109
  Serious: Yes (Life-Threatening, Other)
  Sender: FDA-Public Use
  Company Number: SP01977

PATIENT
  Sex: Female

DRUGS (1)
  1. MOVIPREP [Suspect]
     Dosage: ORAL
     Route: 048

REACTIONS (1)
  - ANAPHYLACTIC SHOCK [None]
